FAERS Safety Report 8773563 (Version 2)
Quarter: 2013Q2

REPORT INFORMATION
  Report Type: Spontaneous
  Country: JP (occurrence: JP)
  Receive Date: 20120907
  Receipt Date: 20130614
  Transmission Date: 20140414
  Serious: Yes (Death, Hospitalization)
  Sender: FDA-Public Use
  Company Number: JP-GLAXOSMITHKLINE-B0828861A

PATIENT
  Age: 53 Year
  Sex: Female
  Weight: 45 kg

DRUGS (2)
  1. HYCAMTIN [Suspect]
     Indication: OVARIAN CANCER RECURRENT
     Dosage: .5MG PER DAY
     Route: 042
     Dates: start: 20120106, end: 20120110
  2. LEUKOPROL [Concomitant]
     Dosage: 6000000UD PER DAY
     Route: 042
     Dates: start: 20110111, end: 20120112

REACTIONS (6)
  - Anaemia [Recovered/Resolved]
  - Febrile neutropenia [Recovered/Resolved]
  - Ovarian cancer recurrent [Fatal]
  - White blood cell count decreased [Recovering/Resolving]
  - Red blood cell count decreased [Unknown]
  - Platelet count decreased [Recovered/Resolved]
